FAERS Safety Report 7761577-1 (Version None)
Quarter: 2011Q3

REPORT INFORMATION
  Report Type: 
  Country: None (occurrence: None)
  Receive Date: 20110920
  Receipt Date: 20100701
  Transmission Date: 20111222
  Serious: No
  Sender: FDA-Public Use
  Company Number: US-BAYER-201028983NA

PATIENT
  Age: 41 Year
  Sex: Female

DRUGS (1)
  1. MIRENA [Suspect]
     Indication: MENORRHAGIA
     Dosage: UNK
     Dates: start: 20090506, end: 20090508

REACTIONS (4)
  - ABDOMINAL PAIN [None]
  - GASTROINTESTINAL PAIN [None]
  - MEDICAL DEVICE PAIN [None]
  - ARTHRALGIA [None]
